FAERS Safety Report 14360383 (Version 1)
Quarter: 2018Q1

REPORT INFORMATION
  Report Type: Spontaneous
  Country: RS (occurrence: RS)
  Receive Date: 20180106
  Receipt Date: 20180106
  Transmission Date: 20180509
  Serious: Yes (Other)
  Sender: FDA-Public Use
  Company Number: RS-BRISTOL-MYERS SQUIBB COMPANY-BMS-2017-120346

PATIENT
  Age: 72 Year
  Sex: Male

DRUGS (1)
  1. HYDROXYUREA. [Suspect]
     Active Substance: HYDROXYUREA
     Indication: POLYCYTHAEMIA VERA
     Dosage: 1 DF, QD
     Route: 065

REACTIONS (4)
  - Actinic keratosis [Unknown]
  - Basal cell carcinoma [Unknown]
  - Squamous cell carcinoma of skin [Unknown]
  - Keratoacanthoma [Unknown]
